FAERS Safety Report 7447407-6 (Version None)
Quarter: 2011Q2

REPORT INFORMATION
  Report Type: 
  Country: None (occurrence: None)
  Receive Date: 20110429
  Receipt Date: 20110207
  Transmission Date: 20111010
  Serious: No
  Sender: FDA-Public Use
  Company Number: US-ASTRAZENECA-2011SE07079

PATIENT
  Age: 33 Year
  Sex: Male

DRUGS (3)
  1. NEXIUM [Suspect]
     Indication: GASTROOESOPHAGEAL REFLUX DISEASE
     Route: 048
     Dates: start: 20000101
  2. SEROQUEL [Suspect]
     Indication: BIPOLAR DISORDER
     Route: 048
     Dates: start: 20040101
  3. SEROQUEL [Suspect]
     Route: 048
     Dates: start: 20060101

REACTIONS (6)
  - DYSPEPSIA [None]
  - NO ADVERSE EVENT [None]
  - DRUG DOSE OMISSION [None]
  - INSOMNIA [None]
  - THERAPEUTIC RESPONSE UNEXPECTED [None]
  - ANXIETY [None]
